FAERS Safety Report 25492816 (Version 4)
Quarter: 2025Q4

REPORT INFORMATION
  Report Type: Spontaneous
  Country: RU (occurrence: RU)
  Receive Date: 20250630
  Receipt Date: 20251009
  Transmission Date: 20260117
  Serious: Yes (Other)
  Sender: ORGANON
  Company Number: RU-ORGANON-O2506RUS002821

PATIENT
  Age: 33 Year
  Sex: Female

DRUGS (1)
  1. NUVARING [Suspect]
     Active Substance: ETHINYL ESTRADIOL\ETONOGESTREL
     Dosage: 1 RING

REACTIONS (3)
  - Abdominal pain lower [Unknown]
  - Pelvic adhesions [Unknown]
  - Anti-Muellerian hormone level decreased [Unknown]

NARRATIVE: CASE EVENT DATE: 20250101
